FAERS Safety Report 25352823 (Version 2)
Quarter: 2025Q2

REPORT INFORMATION
  Report Type: Spontaneous
  Country: US (occurrence: US)
  Receive Date: 20250523
  Receipt Date: 20250610
  Transmission Date: 20250716
  Serious: No
  Sender: CALLIDITAS THERAPEUTICS AB
  Company Number: US-Calliditas-2025CAL01312

PATIENT
  Age: 44 Year
  Sex: Male

DRUGS (3)
  1. TARPEYO [Suspect]
     Active Substance: BUDESONIDE
     Indication: IgA nephropathy
     Dosage: TAKE 4 CAPSULES (16 MG) BY MOUTH ONCE DAILY FOR IGAN
     Route: 048
     Dates: start: 20250123
  2. JARDIANCE [Concomitant]
     Active Substance: EMPAGLIFLOZIN
  3. SPIRONOLACTONE [Concomitant]
     Active Substance: SPIRONOLACTONE

REACTIONS (1)
  - Regurgitation [Recovered/Resolved]

NARRATIVE: CASE EVENT DATE: 20250201
